FAERS Safety Report 7432149-3 (Version None)
Quarter: 2011Q2

REPORT INFORMATION
  Report Type: 
  Country: None (occurrence: None)
  Receive Date: 20110422
  Receipt Date: 20110411
  Transmission Date: 20111010
  Serious: Yes (Hospitalization)
  Sender: FDA-Public Use
  Company Number: CA-JNJFOC-20110405331

PATIENT
  Sex: Male

DRUGS (7)
  1. METHOTREXATE [Concomitant]
  2. SIMPONI [Suspect]
     Indication: RHEUMATOID ARTHRITIS
     Route: 058
  3. FLOMAX [Concomitant]
     Indication: PROSTATIC DISORDER
  4. NAPROXEN [Concomitant]
  5. FOLIC ACID [Concomitant]
  6. PLAQUENIL [Concomitant]
  7. AVODART [Concomitant]
     Indication: PROSTATIC DISORDER

REACTIONS (1)
  - CORONARY ARTERY BYPASS [None]
